FAERS Safety Report 9189790 (Version 1)
Quarter: 2013Q1

REPORT INFORMATION
  Report Type: Spontaneous
  Country: US (occurrence: None)
  Receive Date: 20120703
  Receipt Date: 20120703
  Transmission Date: 20140127
  Serious: No
  Sender: FDA-Public Use
  Company Number: PHEH2012US008069

PATIENT
  Age: 47 Year
  Sex: Female
  Weight: 99.8 kg

DRUGS (6)
  1. GILENYA (FTY)CAPSULE 0.5MG [Suspect]
     Indication: MULTIPLE SCLEROSIS
     Route: 048
     Dates: start: 20120329
  2. ANTIHYPERTENSIVES (NO INGREDIENTS/SUBSTANCES) [Concomitant]
  3. PAXIL (PAROXETINE HYDROCHLORIDE) [Concomitant]
  4. XANAX (ALPRAZOLAM) [Concomitant]
  5. OXYBUTYNIN (OXYBUTYNIN) [Concomitant]
  6. NEURONTIN (GABAPENTIN) [Concomitant]

REACTIONS (5)
  - Fatigue [None]
  - Vomiting [None]
  - Influenza like illness [None]
  - Diarrhoea [None]
  - Dizziness [None]
